FAERS Safety Report 14597176 (Version 1)
Quarter: 2018Q1

REPORT INFORMATION
  Report Type: Report from Study
  Country: DE (occurrence: DE)
  Receive Date: 20180305
  Receipt Date: 20180305
  Transmission Date: 20180509
  Serious: Yes (Hospitalization)
  Sender: FDA-Public Use
  Company Number: DE-IPSEN BIOPHARMACEUTICALS, INC.-2018-03242

PATIENT
  Age: 84 Year
  Sex: Male
  Weight: 94 kg

DRUGS (29)
  1. PEGYLATED LIPOSOMAL IRINOTECAN [Suspect]
     Active Substance: IRINOTECAN HYDROCHLORIDE
     Indication: OFF LABEL USE
     Dosage: 200 MG
     Route: 042
     Dates: start: 20150915
  2. XELODA [Suspect]
     Active Substance: CAPECITABINE
     Indication: COLORECTAL CANCER
     Route: 048
     Dates: start: 20150325, end: 20150405
  3. FOLINIC ACID [Suspect]
     Active Substance: LEUCOVORIN
     Indication: PRODUCT USED FOR UNKNOWN INDICATION
  4. LISINOPRIL. [Concomitant]
     Active Substance: LISINOPRIL
  5. AZOPT [Concomitant]
     Active Substance: BRINZOLAMIDE
  6. PANTOZOL [Concomitant]
     Active Substance: PANTOPRAZOLE SODIUM
  7. METOHEXAL [Concomitant]
     Active Substance: METOPROLOL SUCCINATE
  8. AMLODIPIN [Concomitant]
     Active Substance: AMLODIPINE BESYLATE
  9. UNACID (AMPICILLIN SODIUM, SULBACTAM SODIUM) [Concomitant]
     Active Substance: AMPICILLIN SODIUM\SULBACTAM SODIUM
  10. AVASTIN [Suspect]
     Active Substance: BEVACIZUMAB
     Indication: COLORECTAL CANCER
     Route: 042
     Dates: start: 20141016
  11. SIMVAHEXAL [Concomitant]
     Active Substance: SIMVASTATIN
  12. ASPIRIN. [Concomitant]
     Active Substance: ASPIRIN
  13. LEVEMIR [Concomitant]
     Active Substance: INSULIN DETEMIR
  14. OXALIPLATIN. [Suspect]
     Active Substance: OXALIPLATIN
     Indication: COLORECTAL CANCER
     Route: 042
     Dates: start: 20141016, end: 20150302
  15. NOVALGIN (METAMIZOLE SODIUM) [Concomitant]
     Active Substance: METAMIZOLE SODIUM
  16. AVASTIN [Suspect]
     Active Substance: BEVACIZUMAB
     Route: 042
     Dates: start: 20150818
  17. XELODA [Suspect]
     Active Substance: CAPECITABINE
     Route: 065
     Dates: start: 20150818, end: 20150826
  18. ZOPICLON [Concomitant]
     Active Substance: ZOPICLONE
  19. FENTANYL. [Concomitant]
     Active Substance: FENTANYL
  20. MCP [Concomitant]
     Active Substance: METOCLOPRAMIDE HYDROCHLORIDE
  21. XELODA [Suspect]
     Active Substance: CAPECITABINE
     Route: 048
     Dates: start: 20150915, end: 20150922
  22. TOREM [Concomitant]
     Active Substance: TORSEMIDE
  23. CIPROBAY [Concomitant]
     Active Substance: CIPROFLOXACIN
  24. GRANISETRON [Concomitant]
     Active Substance: GRANISETRON
  25. L-THYROXIN [Concomitant]
     Active Substance: LEVOTHYROXINE SODIUM
  26. PEGYLATED LIPOSOMAL IRINOTECAN [Suspect]
     Active Substance: IRINOTECAN HYDROCHLORIDE
     Indication: COLORECTAL CANCER
     Dosage: 300 MG
     Route: 042
     Dates: start: 20150818
  27. 5-FLUOROURACIL [Suspect]
     Active Substance: FLUOROURACIL
     Indication: PRODUCT USED FOR UNKNOWN INDICATION
     Dates: start: 20141016, end: 20150303
  28. NOVORAPID [Concomitant]
     Active Substance: INSULIN ASPART
  29. DEXAMETHASON [Concomitant]
     Active Substance: DEXAMETHASONE
     Dates: start: 20150818, end: 20150915

REACTIONS (2)
  - Diarrhoea [Recovered/Resolved]
  - Off label use [Unknown]

NARRATIVE: CASE EVENT DATE: 20150827
